FAERS Safety Report 24022639 (Version 1)
Quarter: 2024Q2

REPORT INFORMATION
  Report Type: Report from Study
  Country: CN (occurrence: CN)
  Receive Date: 20240627
  Receipt Date: 20240627
  Transmission Date: 20240715
  Serious: No
  Sender: FDA-Public Use
  Company Number: CN-ROCHE-3369847

PATIENT
  Age: 47 Year
  Sex: Female
  Weight: 68.0 kg

DRUGS (1)
  1. ALECENSA [Suspect]
     Active Substance: ALECTINIB HYDROCHLORIDE
     Indication: Lung neoplasm malignant
     Dosage: 56 CAPSULES  4 SMALL BOXES
     Route: 048
     Dates: start: 20230511

REACTIONS (1)
  - Constipation [Not Recovered/Not Resolved]
